FAERS Safety Report 6039781-2 (Version None)
Quarter: 2009Q1

REPORT INFORMATION
  Report Type: 
  Country: None (occurrence: None)
  Receive Date: 20090116
  Receipt Date: 20090106
  Transmission Date: 20090719
  Serious: Yes (Other)
  Sender: FDA-Public Use
  Company Number: US-AMGEN-QUU327340

PATIENT
  Sex: Female

DRUGS (7)
  1. NEUPOGEN [Suspect]
     Indication: CHEMOTHERAPY
     Dates: start: 19990101
  2. VITAMIN D [Concomitant]
  3. SYNTHROID [Concomitant]
  4. AREDIA [Concomitant]
  5. AVASTIN [Concomitant]
  6. GEMZAR [Concomitant]
     Dates: start: 20070901
  7. ALCOHOL [Concomitant]

REACTIONS (5)
  - HYPERTENSION [None]
  - METASTASES TO BONE [None]
  - MUSCLE SPASMS [None]
  - OEDEMA PERIPHERAL [None]
  - WHITE BLOOD CELL COUNT DECREASED [None]
